FAERS Safety Report 7647102-4 (Version None)
Quarter: 2011Q3

REPORT INFORMATION
  Report Type: 
  Country: None (occurrence: None)
  Receive Date: 20110801
  Receipt Date: 20110725
  Transmission Date: 20111222
  Serious: Yes (Death, Other)
  Sender: FDA-Public Use
  Company Number: US-TEVA-292779USA

PATIENT
  Age: 34 Year
  Sex: Male

DRUGS (1)
  1. ACETAMINOPHEN AND OXYCODONE HCL [Suspect]

REACTIONS (3)
  - ENCEPHALOPATHY [None]
  - DRUG ABUSE [None]
  - TOXICITY TO VARIOUS AGENTS [None]
